FAERS Safety Report 24768055 (Version 2)
Quarter: 2025Q2

REPORT INFORMATION
  Report Type: Spontaneous
  Country: US (occurrence: US)
  Receive Date: 20241223
  Receipt Date: 20250424
  Transmission Date: 20250716
  Serious: No
  Sender: ASTELLAS
  Company Number: US-ASTELLAS-2024-AER-025825

PATIENT

DRUGS (1)
  1. IZERVAY [Suspect]
     Active Substance: AVACINCAPTAD PEGOL SODIUM
     Indication: Product used for unknown indication
     Route: 050

REACTIONS (3)
  - Needle issue [Unknown]
  - No adverse event [Unknown]
  - Device issue [Unknown]
